FAERS Safety Report 9459057 (Version 7)
Quarter: 2015Q1

REPORT INFORMATION
  Report Type: Spontaneous
  Country: US (occurrence: US)
  Receive Date: 20130814
  Receipt Date: 20150226
  Transmission Date: 20150721
  Serious: Yes (Hospitalization, Other)
  Sender: FDA-Public Use
  Company Number: US-009507513-1308USA003240

PATIENT
  Sex: Female
  Weight: 60.54 kg

DRUGS (6)
  1. FOSAMAX PLUS D [Suspect]
     Active Substance: ALENDRONATE SODIUM\CHOLECALCIFEROL
     Indication: OSTEOPOROSIS
     Dosage: 70 MG/ 2800 IU, QW
     Route: 048
     Dates: start: 200503, end: 20080401
  2. ARAVA [Concomitant]
     Active Substance: LEFLUNOMIDE
     Indication: RHEUMATOID ARTHRITIS
     Dosage: 20 MG, UNK
     Dates: start: 2003
  3. FOSAMAX [Suspect]
     Active Substance: ALENDRONATE SODIUM
     Indication: OSTEOPOROSIS
     Dosage: 70 MG, QW
     Route: 048
  4. DELTASONE [Concomitant]
     Active Substance: PREDNISONE
     Indication: RHEUMATOID ARTHRITIS
     Dosage: 5 MG, PRN
     Dates: start: 2003
  5. DELTASONE [Concomitant]
     Active Substance: PREDNISONE
     Dosage: 20 MG, QD
     Route: 048
  6. ALENDRONATE SODIUM. [Suspect]
     Active Substance: ALENDRONATE SODIUM
     Indication: OSTEOPOROSIS
     Dosage: 70 MG, QW
     Route: 048
     Dates: start: 200802, end: 20111006

REACTIONS (11)
  - Dermatitis [Unknown]
  - Spinal osteoarthritis [Unknown]
  - Intramedullary rod insertion [Unknown]
  - Knee arthroplasty [Unknown]
  - Femur fracture [Recovering/Resolving]
  - Hypertension [Unknown]
  - Renal cyst [Unknown]
  - Femur fracture [Unknown]
  - Osteoarthritis [Unknown]
  - Knee arthroplasty [Unknown]
  - Osteopenia [Unknown]

NARRATIVE: CASE EVENT DATE: 2009
